FAERS Safety Report 21926745 (Version 1)
Quarter: 2023Q1

REPORT INFORMATION
  Report Type: Spontaneous
  Country: US (occurrence: US)
  Receive Date: 20230130
  Receipt Date: 20230130
  Transmission Date: 20230418
  Serious: No
  Sender: FDA-Public Use
  Company Number: US-GALDERMA-US2022017120

PATIENT

DRUGS (2)
  1. DESONIDE [Suspect]
     Active Substance: DESONIDE
     Indication: Fungal infection
     Dosage: 1 DOSAGE FORM DAILY
     Route: 061
     Dates: start: 202202
  2. CICLOPIROX [Concomitant]
     Active Substance: CICLOPIROX
     Indication: Fungal infection
     Dosage: 1 DOSAGE FORM
     Route: 061
     Dates: start: 2022

REACTIONS (3)
  - Alopecia [Unknown]
  - Drug ineffective for unapproved indication [Recovered/Resolved]
  - Intentional product use issue [Recovered/Resolved]

NARRATIVE: CASE EVENT DATE: 20220101
